FAERS Safety Report 9869299 (Version 2)
Quarter: 2014Q2

REPORT INFORMATION
  Report Type: Report from Study
  Country: FR (occurrence: FR)
  Receive Date: 20140205
  Receipt Date: 20140521
  Transmission Date: 20141212
  Serious: No
  Sender: FDA-Public Use
  Company Number: FR-ROCHE-1344203

PATIENT
  Age: 81 Year
  Sex: Female

DRUGS (20)
  1. PERTUZUMAB [Suspect]
     Indication: BREAST CANCER
     Route: 065
  2. TRASTUZUMAB [Suspect]
     Indication: BREAST CANCER
     Route: 065
  3. CORTANCYL [Concomitant]
     Route: 065
     Dates: start: 201104
  4. LOPERAMIDE [Concomitant]
     Indication: DIARRHOEA
     Dosage: DOSE: 2 MG/STOOL
     Route: 065
     Dates: start: 20130626, end: 20130809
  5. POLARAMINE [Concomitant]
     Indication: PREMEDICATION
     Route: 065
     Dates: start: 20130605, end: 20130605
  6. POLARAMINE [Concomitant]
     Route: 065
     Dates: start: 20130626, end: 20130626
  7. POLARAMINE [Concomitant]
     Route: 065
     Dates: start: 20130717, end: 20130717
  8. METHYLPREDNISOLONE [Concomitant]
     Indication: PREMEDICATION
     Route: 065
     Dates: start: 20130605, end: 20130605
  9. METHYLPREDNISOLONE [Concomitant]
     Route: 065
     Dates: start: 20130626, end: 20130626
  10. METHYLPREDNISOLONE [Concomitant]
     Route: 065
     Dates: start: 20130717, end: 20130717
  11. AZANTAC [Concomitant]
     Indication: PREMEDICATION
     Route: 065
     Dates: start: 20130605, end: 20130605
  12. AZANTAC [Concomitant]
     Route: 065
     Dates: start: 20130626, end: 20130626
  13. AZANTAC [Concomitant]
     Route: 065
     Dates: start: 20130717, end: 20130717
  14. AUGMENTIN [Concomitant]
     Dosage: DAILY DOSE: MD
     Route: 065
     Dates: start: 20130807, end: 20130827
  15. ERYTHROMYCIN [Concomitant]
     Route: 065
     Dates: start: 20130612, end: 20130625
  16. TRIFLUCAN [Concomitant]
     Route: 065
     Dates: start: 20130903, end: 20130910
  17. TRIFLUCAN [Concomitant]
     Route: 065
     Dates: start: 20130911, end: 20130923
  18. KARDEGIC [Concomitant]
     Route: 065
     Dates: start: 20131023
  19. TAHOR [Concomitant]
     Route: 065
     Dates: start: 20131023
  20. PANTOPRAZOLE [Concomitant]
     Indication: PROPHYLAXIS
     Route: 065

REACTIONS (1)
  - Ejection fraction decreased [Not Recovered/Not Resolved]
